FAERS Safety Report 20438551 (Version 1)
Quarter: 2022Q1

REPORT INFORMATION
  Report Type: Other
  Country: US (occurrence: None)
  Receive Date: 20220207
  Receipt Date: 20220207
  Transmission Date: 20220424
  Serious: No
  Sender: FDA-Public Use
  Company Number: US-ROCHE-3017178

PATIENT
  Sex: Female
  Weight: 63.560 kg

DRUGS (3)
  1. OCREVUS [Suspect]
     Active Substance: OCRELIZUMAB
     Indication: Multiple sclerosis
     Dosage: OVER 2.5 HOURS
     Route: 065
  2. OCREVUS [Suspect]
     Active Substance: OCRELIZUMAB
     Dosage: EVERY 3.5 HOURS
     Route: 065
  3. CLARISCAN [Concomitant]
     Active Substance: GADOTERATE MEGLUMINE
     Route: 042

REACTIONS (1)
  - COVID-19 [Unknown]
